FAERS Safety Report 26041467 (Version 1)
Quarter: 2025Q4

REPORT INFORMATION
  Report Type: Spontaneous
  Country: EU (occurrence: EU)
  Receive Date: 20251113
  Receipt Date: 20251113
  Transmission Date: 20260117
  Serious: Yes (Other)
  Sender: MERCK SHARP & DOHME LLC
  Company Number: None

PATIENT
  Age: 62 Year
  Sex: Female
  Weight: 91 kg

DRUGS (4)
  1. DELSTRIGO [Suspect]
     Active Substance: DORAVIRINE\LAMIVUDINE\TENOFOVIR DISOPROXIL FUMARATE
     Indication: HIV infection
     Dates: start: 20250416, end: 20250527
  2. ACEBUTOLOL HYDROCHLORIDE [Concomitant]
     Active Substance: ACEBUTOLOL HYDROCHLORIDE
     Route: 048
  3. IRBESARTAN [Concomitant]
     Active Substance: IRBESARTAN
     Route: 048
  4. ROSUVASTATIN [Concomitant]
     Active Substance: ROSUVASTATIN
     Route: 048

REACTIONS (1)
  - Hepatic cytolysis [Recovered/Resolved]

NARRATIVE: CASE EVENT DATE: 20250527
